FAERS Safety Report 10285171 (Version 2)
Quarter: 2014Q3

REPORT INFORMATION
  Report Type: Report from Study
  Country: US (occurrence: US)
  Receive Date: 20140708
  Receipt Date: 20140708
  Transmission Date: 20150326
  Serious: Yes (Other)
  Sender: FDA-Public Use
  Company Number: US-SA-2014SA031609

PATIENT
  Age: 63 Year
  Sex: Male

DRUGS (1)
  1. AUBAGIO [Suspect]
     Active Substance: TERIFLUNOMIDE
     Indication: MULTIPLE SCLEROSIS
     Route: 048
     Dates: start: 20140226

REACTIONS (8)
  - Pain [Unknown]
  - Alopecia [Unknown]
  - Chest pain [Unknown]
  - Headache [Unknown]
  - Empty sella syndrome [Unknown]
  - Hypertension [Not Recovered/Not Resolved]
  - Acne [Unknown]
  - Mass [Unknown]

NARRATIVE: CASE EVENT DATE: 2014
